FAERS Safety Report 5638005-5 (Version None)
Quarter: 2008Q1

REPORT INFORMATION
  Report Type: 
  Country: None (occurrence: None)
  Receive Date: 20080222
  Receipt Date: 20080222
  Transmission Date: 20080703
  Serious: Yes (Other)
  Sender: FDA-Public Use
  Company Number: None

PATIENT
  Sex: Female
  Weight: 81.6475 kg

DRUGS (4)
  1. SIMVASTATIN 20 MG REDDY [Suspect]
     Indication: BLOOD CHOLESTEROL
     Dosage: 20 MG ONCE A DAY PO
     Route: 048
     Dates: start: 20061130, end: 20080220
  2. SYNTHROID [Concomitant]
  3. INSULIN SIMVASTATIN [Concomitant]
  4. NOVOLOG [Concomitant]

REACTIONS (2)
  - ANGER [None]
  - MEMORY IMPAIRMENT [None]
